FAERS Safety Report 9203738 (Version 3)
Quarter: 2013Q2

REPORT INFORMATION
  Report Type: Spontaneous
  Country: IR (occurrence: IR)
  Receive Date: 20130402
  Receipt Date: 20130411
  Transmission Date: 20140414
  Serious: Yes (Death, Other)
  Sender: FDA-Public Use
  Company Number: PHHY2013IR031086

PATIENT
  Age: 14 Year
  Sex: Female
  Weight: 50 kg

DRUGS (8)
  1. EXJADE [Suspect]
     Indication: THALASSAEMIA BETA
     Dosage: 20 MG/KG, QD
     Route: 048
     Dates: start: 200903, end: 20130221
  2. DESFERAL [Suspect]
     Indication: THALASSAEMIA BETA
     Dosage: UNK
     Route: 042
     Dates: end: 200903
  3. DESFERAL [Suspect]
     Dosage: UNK
     Route: 042
     Dates: start: 20130316
  4. BLOOD TRANSFUSION, AUXILIARY PRODUCTS [Concomitant]
     Dosage: 2-4 UNITS, EVERY 30-40 DAYS
  5. ALBUMIN [Concomitant]
     Dosage: UNK UKN, UNK
     Dates: start: 20130316
  6. DOPAMIN [Concomitant]
     Dosage: UNK
     Dates: start: 20130316
  7. FOLIC ACID [Concomitant]
     Dosage: UNK UKN, UNK
  8. CALCIUM [Concomitant]
     Dosage: UNK UKN, UNK

REACTIONS (9)
  - Multi-organ failure [Fatal]
  - Cardio-respiratory arrest [Fatal]
  - Hepatic encephalopathy [Fatal]
  - Hepatorenal syndrome [Fatal]
  - Acute hepatic failure [Fatal]
  - Liver function test abnormal [Fatal]
  - Renal impairment [Unknown]
  - Proteinuria [Unknown]
  - Glycosuria [Unknown]
